FAERS Safety Report 15245212 (Version 4)
Quarter: 2019Q2

REPORT INFORMATION
  Report Type: Spontaneous
  Country: US (occurrence: US)
  Receive Date: 20180806
  Receipt Date: 20190514
  Transmission Date: 20190711
  Serious: No
  Sender: FDA-Public Use
  Company Number: US-PFIZER INC-2018309259

PATIENT
  Age: 21 Year
  Sex: Male
  Weight: 74.83 kg

DRUGS (3)
  1. SERTRALINE HCL [Suspect]
     Active Substance: SERTRALINE HYDROCHLORIDE
     Dosage: 5 ML, 1X/DAY (AFTER 5 DAYS 5 ML ONCE PER DAY BY MOUTH)
     Route: 048
  2. SERTRALINE HCL [Suspect]
     Active Substance: SERTRALINE HYDROCHLORIDE
     Indication: ANXIETY
     Dosage: UNK, (ONE HALF OF A TEASPOON FOR THE FIRST 5 DAYS)
     Route: 048
  3. SERTRALINE HCL [Suspect]
     Active Substance: SERTRALINE HYDROCHLORIDE
     Dosage: 2.5 ML, 1X/DAY (FOR 5 DAYS ONCE A DAY)
     Route: 048

REACTIONS (2)
  - Hypoaesthesia oral [Recovering/Resolving]
  - Product taste abnormal [Recovering/Resolving]

NARRATIVE: CASE EVENT DATE: 2018
